FAERS Safety Report 24427205 (Version 2)
Quarter: 2024Q4

REPORT INFORMATION
  Report Type: Spontaneous
  Country: CA (occurrence: CA)
  Receive Date: 20241011
  Receipt Date: 20241129
  Transmission Date: 20250114
  Serious: No
  Sender: PFIZER
  Company Number: CA-PFIZER INC-202400271746

PATIENT
  Age: 56 Year
  Sex: Male

DRUGS (1)
  1. ABRILADA [Suspect]
     Active Substance: ADALIMUMAB-AFZB
     Indication: Colitis ulcerative
     Dosage: 40 MG, EVERY 2 WEEKS
     Route: 058
     Dates: start: 20220531

REACTIONS (1)
  - Device breakage [Unknown]
